FAERS Safety Report 6640536-6 (Version None)
Quarter: 2010Q1

REPORT INFORMATION
  Report Type: 
  Country: None (occurrence: None)
  Receive Date: 20100318
  Receipt Date: 20100310
  Transmission Date: 20100710
  Serious: Yes (Other)
  Sender: FDA-Public Use
  Company Number: US-MERCK-0806USA02568

PATIENT
  Age: 65 Year
  Sex: Female

DRUGS (5)
  1. FOSAMAX [Suspect]
     Indication: OSTEOPOROSIS
     Route: 048
     Dates: start: 20000717, end: 20001101
  2. FOSAMAX [Suspect]
     Route: 048
     Dates: start: 20001101, end: 20050801
  3. FOSAMAX [Suspect]
     Indication: COMPRESSION FRACTURE
     Route: 048
     Dates: start: 20000717, end: 20001101
  4. FOSAMAX [Suspect]
     Route: 048
     Dates: start: 20001101, end: 20050801
  5. BONIVA [Suspect]
     Route: 065

REACTIONS (32)
  - ABDOMINAL PAIN [None]
  - ACUTE STRESS DISORDER [None]
  - ANIMAL BITE [None]
  - BACK PAIN [None]
  - BONE LESION [None]
  - BURSITIS [None]
  - CATARACT [None]
  - CHEST PAIN [None]
  - COMPRESSION FRACTURE [None]
  - DRUG INEFFECTIVE [None]
  - DYSPNOEA [None]
  - FOOD ALLERGY [None]
  - GASTROOESOPHAGEAL REFLUX DISEASE [None]
  - HERPES ZOSTER [None]
  - IMPAIRED HEALING [None]
  - INJURY [None]
  - INTERVERTEBRAL DISC PROTRUSION [None]
  - KYPHOSIS [None]
  - MUSCLE SPASMS [None]
  - MUSCLE STRAIN [None]
  - NEURITIS [None]
  - OESOPHAGEAL SPASM [None]
  - OSTEONECROSIS [None]
  - OSTEOPOROSIS [None]
  - RADICULOPATHY [None]
  - SPINAL COMPRESSION FRACTURE [None]
  - SPINAL DEFORMITY [None]
  - SPINAL FRACTURE [None]
  - TOOTH DISORDER [None]
  - TOOTH LOSS [None]
  - WEIGHT DECREASED [None]
  - WOUND DEHISCENCE [None]
